FAERS Safety Report 11110139 (Version 1)
Quarter: 2015Q2

REPORT INFORMATION
  Report Type: Spontaneous
  Country: US (occurrence: US)
  Receive Date: 20150513
  Receipt Date: 20150513
  Transmission Date: 20150821
  Serious: No
  Sender: FDA-Public Use
  Company Number: US-BAYER-2015-220614

PATIENT
  Age: 28 Year
  Sex: Female
  Weight: 66 kg

DRUGS (5)
  1. MIRALAX [Suspect]
     Active Substance: POLYETHYLENE GLYCOL 3350
     Indication: CONSTIPATION
     Dosage: 1 DOSE, TID
     Route: 048
  2. SALINE [SODIUM CHLORIDE] [Concomitant]
     Dosage: UNK UNK, BID
  3. ENEMA [PHOSPHORIC ACID SODIUM,SODIUM PHOSPHATE DIBASIC] [Concomitant]
  4. TRAMADOL [Concomitant]
     Active Substance: TRAMADOL
     Dosage: UNK
  5. AMITRIPTYLINE [Concomitant]
     Active Substance: AMITRIPTYLINE
     Dosage: UNK

REACTIONS (3)
  - Incorrect drug administration duration [Unknown]
  - Inappropriate schedule of drug administration [Unknown]
  - Abdominal distension [Unknown]
